FAERS Safety Report 8610482 (Version 2)
Quarter: 2014Q1

REPORT INFORMATION
  Report Type: Spontaneous
  Country: US (occurrence: None)
  Receive Date: 20120323
  Receipt Date: 20130305
  Transmission Date: 20141002
  Serious: Yes (Hospitalization, Other)
  Sender: FDA-Public Use
  Company Number: 163-21880-11043797

PATIENT
  Age: 77 Year
  Sex: Female

DRUGS (14)
  1. REVLIMID [Suspect]
     Indication: PLASMA CELL MYELOMA
     Dosage: 25 MG, DAILY FOR 21 DAYS, 7 DAYS OFF
     Route: 048
     Dates: start: 20110322
  2. PLATELETS (PLATELETS, HUMAN BLOOD) [Concomitant]
  3. ANTIBIOTICS [Concomitant]
  4. ASA (ACETYLSALICYLIC ACID) [Concomitant]
  5. FERROUS GLUCONATE [Concomitant]
  6. FOLTX (TRIOBE) [Concomitant]
  7. GABAPENTIN [Concomitant]
  8. LEXAPRO (ESCITALOPRAM OXALATE) [Concomitant]
  9. NYSTATIN [Concomitant]
  10. VICODIN [Concomitant]
  11. VITAMIN D (ERGOCALCIFEROL) [Concomitant]
  12. CYANOCOBALAMIN [Concomitant]
  13. VYTORIN (INEGY) [Concomitant]
  14. ZYRTEC (CETIRIZINE HYDROCHLORIDE) [Concomitant]

REACTIONS (5)
  - Febrile neutropenia [None]
  - Nasopharyngitis [None]
  - Pyrexia [None]
  - Sinusitis [None]
  - Platelet count decreased [None]
